FAERS Safety Report 8360828-2 (Version None)
Quarter: 2012Q2

REPORT INFORMATION
  Report Type: 
  Country: None (occurrence: None)
  Receive Date: 20120515
  Receipt Date: 20120503
  Transmission Date: 20120825
  Serious: Yes (Hospitalization)
  Sender: FDA-Public Use
  Company Number: DE-ALEXION PHARMACEUTICALS INC.-A201200835

PATIENT
  Sex: Female

DRUGS (14)
  1. CALCITRIOL [Concomitant]
     Dosage: 0.25 UG, 1/DAY
  2. DEKRISTOL [Concomitant]
     Dosage: 20,000 IE
  3. CARVEDILOL [Concomitant]
     Dosage: 25 MG, BID
  4. RAMIPRIL [Concomitant]
     Dosage: 2.5 MG, QD
  5. NEORECORMON [Concomitant]
     Dosage: 4,000 IE
  6. PANTOPRAZOLE [Concomitant]
     Dosage: 40 MG, QD
  7. TORSEMIDE [Concomitant]
     Dosage: 100 MG, QD
  8. PREDNISOLONE [Concomitant]
     Dosage: 5 MG, QD
  9. DOXAZOSIN MESYLATE [Concomitant]
     Dosage: 4 MG, BID
  10. SOLIRIS [Suspect]
     Indication: HAEMOLYTIC URAEMIC SYNDROME
     Dosage: 900 MG, QW
     Route: 042
     Dates: start: 20120322
  11. LERCANIDIPINE [Concomitant]
     Dosage: 20, 1/DAY
  12. LEVETIRACETAM [Concomitant]
     Dosage: 500 MG, BID
  13. DREISAVIT [Concomitant]
     Dosage: 1/DAY
  14. RENAGEL [Concomitant]
     Dosage: 800 MG X6, DAY

REACTIONS (2)
  - BIOPSY KIDNEY [None]
  - HAEMOLYTIC URAEMIC SYNDROME [None]
